FAERS Safety Report 25491746 (Version 1)
Quarter: 2025Q2

REPORT INFORMATION
  Report Type: Spontaneous
  Country: US (occurrence: US)
  Receive Date: 20250630
  Receipt Date: 20250630
  Transmission Date: 20250717
  Serious: Yes (Hospitalization)
  Sender: Haleon PLC
  Company Number: US-HALEON-2248293

PATIENT

DRUGS (7)
  1. ACETAMINOPHEN [Suspect]
     Active Substance: ACETAMINOPHEN
     Indication: Abdominal pain upper
     Route: 064
  2. LABETALOL [Suspect]
     Active Substance: LABETALOL
     Indication: Blood pressure abnormal
     Route: 064
  3. LABETALOL [Suspect]
     Active Substance: LABETALOL
     Route: 064
  4. MAGNESIUM [Suspect]
     Active Substance: MAGNESIUM
     Indication: Seizure prophylaxis
     Route: 064
  5. GABAPENTIN [Suspect]
     Active Substance: GABAPENTIN
     Indication: Abdominal pain upper
     Route: 064
  6. CYCLOBENZAPRINE [Suspect]
     Active Substance: CYCLOBENZAPRINE
     Indication: Abdominal pain upper
     Route: 064
  7. NIFEDIPINE [Suspect]
     Active Substance: NIFEDIPINE
     Indication: Blood pressure abnormal
     Route: 064

REACTIONS (3)
  - Low birth weight baby [Unknown]
  - Foetal exposure during pregnancy [Unknown]
  - Premature baby [Unknown]
